FAERS Safety Report 4684924-6 (Version None)
Quarter: 2005Q2

REPORT INFORMATION
  Report Type: 
  Country: None (occurrence: None)
  Receive Date: 20050606
  Receipt Date: 20050606
  Transmission Date: 20051028
  Serious: Yes (Hospitalization)
  Sender: FDA-Public Use
  Company Number: None

PATIENT
  Age: 69 Year
  Sex: Male

DRUGS (2)
  1. TRILEPTAL [Suspect]
     Indication: DEPRESSION
  2. TRILEPTAL [Suspect]
     Indication: DYSTHYMIC DISORDER

REACTIONS (5)
  - BLOOD PRESSURE INCREASED [None]
  - DEPRESSION [None]
  - DIABETES MELLITUS [None]
  - DYSTHYMIC DISORDER [None]
  - RASH PRURITIC [None]
